FAERS Safety Report 21308147 (Version 1)
Quarter: 2022Q3

REPORT INFORMATION
  Report Type: Spontaneous
  Country: US (occurrence: None)
  Receive Date: 20220907
  Receipt Date: 20220907
  Transmission Date: 20221026
  Serious: Yes (Other)
  Sender: FDA-Public Use
  Company Number: None

PATIENT
  Age: 23 Year
  Sex: Female
  Weight: 126 kg

DRUGS (1)
  1. LYBALVI [Suspect]
     Active Substance: OLANZAPINE\SAMIDORPHAN L-MALATE
     Indication: Bipolar disorder
     Dates: start: 20220906, end: 20220907

REACTIONS (7)
  - Tremor [None]
  - Mental impairment [None]
  - Dissociation [None]
  - Somnolence [None]
  - Feeling abnormal [None]
  - Clumsiness [None]
  - Derealisation [None]

NARRATIVE: CASE EVENT DATE: 20220906
